FAERS Safety Report 8572110 (Version 5)
Quarter: 2013Q1

REPORT INFORMATION
  Report Type: Spontaneous
  Country: US (occurrence: US)
  Receive Date: 20120521
  Receipt Date: 20130123
  Transmission Date: 20140127
  Serious: Yes (Hospitalization, Other)
  Sender: FDA-Public Use
  Company Number: US-ASTRAZENECA-2011SE63359

PATIENT
  Age: 68 Year
  Sex: Female

DRUGS (6)
  1. ATACAND [Suspect]
     Route: 048
  2. NEXIUM [Suspect]
     Route: 048
  3. TOPROL XL [Suspect]
     Dosage: THREE TIMES A DAY
     Route: 048
  4. TOPROL XL [Suspect]
     Dosage: ONCE A DAY
     Route: 048
  5. TOPROL XL [Suspect]
     Dosage: THREE TIMES A DAY
     Route: 048
  6. CRESTOR [Suspect]
     Route: 048

REACTIONS (11)
  - Myocardial infarction [Unknown]
  - Cardiac failure congestive [Unknown]
  - Blood calcium decreased [Unknown]
  - Sleep disorder due to general medical condition, insomnia type [Recovered/Resolved]
  - Sinusitis [Unknown]
  - Hypertension [Unknown]
  - Cough [Recovered/Resolved]
  - Cough [Recovered/Resolved]
  - Malaise [Unknown]
  - Intentional drug misuse [Unknown]
  - Drug dose omission [Unknown]
